FAERS Safety Report 6059622-7 (Version None)
Quarter: 2009Q1

REPORT INFORMATION
  Report Type: 
  Country: None (occurrence: None)
  Receive Date: 20090130
  Receipt Date: 20090121
  Transmission Date: 20090719
  Serious: Yes (Hospitalization)
  Sender: FDA-Public Use
  Company Number: GB-ROCHE-610068

PATIENT
  Sex: Male
  Weight: 162 kg

DRUGS (5)
  1. ORLISTAT [Suspect]
     Indication: OBESITY
     Route: 048
     Dates: start: 20080821
  2. PERINDOPRIL ERBUMINE [Concomitant]
     Dosage: DOSAGE: UNKNOWN, BUT TAKEN 2 DAILY
     Route: 048
  3. NICORANDIL [Concomitant]
     Dosage: DRUG: NICORANDEL; DOSAGE: UNKNOWN BUT TAKEN 1 DAILY
     Route: 048
  4. ASPIRIN [Concomitant]
     Indication: LABORATORY TEST
     Dosage: DOSAGE: UNKNOWN BUT TAKEN 1 DAILY
     Route: 048
  5. STATIN NOS [Concomitant]
     Dosage: DRUG: STATIN; DOSAGE: UNKNOWN BUT TAKEN 1 DAILY
     Route: 048

REACTIONS (1)
  - CELLULITIS [None]
